FAERS Safety Report 21422717 (Version 1)
Quarter: 2022Q4

REPORT INFORMATION
  Report Type: Spontaneous
  Country: US (occurrence: US)
  Receive Date: 20221007
  Receipt Date: 20221007
  Transmission Date: 20230113
  Serious: Yes (Other)
  Sender: FDA-Public Use
  Company Number: US-PFIZER INC-202201206871

PATIENT
  Age: 49 Year
  Sex: Female
  Weight: 67.13 kg

DRUGS (4)
  1. PROPOFOL [Suspect]
     Active Substance: PROPOFOL
     Indication: Colonoscopy
     Dosage: 280 MG
     Route: 042
     Dates: start: 20221004
  2. ARMOUR THYROID [Concomitant]
     Active Substance: THYROID, PORCINE
     Indication: Thyroid disorder
     Dosage: UNK
  3. PROGESTERONE [Concomitant]
     Active Substance: PROGESTERONE
     Dosage: UNK
  4. ESTROGENS [Concomitant]
     Active Substance: ESTROGENS
     Dosage: PATCH

REACTIONS (11)
  - Off label use [Unknown]
  - Product use issue [Unknown]
  - Anaphylactic reaction [Unknown]
  - Presyncope [Unknown]
  - Eyelid pain [Unknown]
  - Swelling of eyelid [Unknown]
  - Eye swelling [Not Recovered/Not Resolved]
  - Throat tightness [Not Recovered/Not Resolved]
  - Aphonia [Unknown]
  - Fatigue [Unknown]
  - Dyspnoea [Unknown]

NARRATIVE: CASE EVENT DATE: 20221004
